FAERS Safety Report 20282334 (Version 1)
Quarter: 2022Q1

REPORT INFORMATION
  Report Type: Spontaneous
  Country: US (occurrence: None)
  Receive Date: 20220101
  Receipt Date: 20220101
  Transmission Date: 20220423
  Serious: Yes (Hospitalization)
  Sender: FDA-Public Use
  Company Number: None

PATIENT
  Age: 74 Year
  Sex: Male
  Weight: 92 kg

DRUGS (3)
  1. ASPIRIN 81MG [Suspect]
     Active Substance: ASPIRIN
     Indication: Coronary artery disease
     Dosage: FREQUENCY : DAILY;?
     Route: 048
     Dates: start: 20170526, end: 20211203
  2. ASPIRIN 81MG [Suspect]
     Active Substance: ASPIRIN
     Indication: Ischaemic heart disease prophylaxis
  3. APIXABAN [Suspect]
     Active Substance: APIXABAN
     Indication: Atrial fibrillation
     Dates: start: 20190104

REACTIONS (3)
  - Gastrointestinal haemorrhage [None]
  - Hypovolaemia [None]
  - Rectal haemorrhage [None]

NARRATIVE: CASE EVENT DATE: 20211203
